FAERS Safety Report 4565550-6 (Version None)
Quarter: 2005Q1

REPORT INFORMATION
  Report Type: 
  Country: None (occurrence: None)
  Receive Date: 20050126
  Receipt Date: 20050105
  Transmission Date: 20050727
  Serious: No
  Sender: FDA-Public Use
  Company Number: USA050187505

PATIENT
  Age: 56 Year
  Sex: Female
  Weight: 67 kg

DRUGS (10)
  1. CYMBALTA [Suspect]
     Indication: DEPRESSION
     Dosage: 30MG/M2 DAY
     Dates: start: 20040101, end: 20041221
  2. ATENOLOL [Concomitant]
  3. KLONOPIN [Concomitant]
  4. TYLENOL W/ CODEINE NO. 3 [Concomitant]
  5. ALLEGRA [Concomitant]
  6. PREVACID [Concomitant]
  7. FOSAMAX [Concomitant]
  8. TRIAMTERENE AND HYDROCHLOROTHIAZIDE [Concomitant]
  9. BENTYL (DICYLCLOVERINE HYDROCHLORIDE) [Concomitant]
  10. THYROID TAB [Concomitant]

REACTIONS (8)
  - AFFECTIVE DISORDER [None]
  - ALANINE AMINOTRANSFERASE INCREASED [None]
  - ARTHRALGIA [None]
  - ASPARTATE AMINOTRANSFERASE INCREASED [None]
  - CONDITION AGGRAVATED [None]
  - DRUG INEFFECTIVE [None]
  - FEELING ABNORMAL [None]
  - HEPATIC ENZYME INCREASED [None]
